FAERS Safety Report 9450834 (Version 1)
Quarter: 2013Q3

REPORT INFORMATION
  Report Type: Spontaneous
  Country: AU (occurrence: AU)
  Receive Date: 20130809
  Receipt Date: 20130809
  Transmission Date: 20140515
  Serious: Yes (Disabling)
  Sender: FDA-Public Use
  Company Number: AU-PFIZER INC-2013215920

PATIENT
  Age: 38 Year
  Sex: Female
  Weight: 102 kg

DRUGS (5)
  1. EFEXOR XR [Suspect]
     Indication: MOOD ALTERED
     Dosage: 150 MG, UNK
  2. EFEXOR XR [Suspect]
     Indication: ANXIETY
     Dosage: 112.5 MG, UNK
  3. EFEXOR XR [Suspect]
     Indication: DEPRESSION
     Dosage: 75 MG, UNK
  4. EFEXOR XR [Suspect]
     Dosage: 37.5 MG, 1X/DAY
  5. BROMOCRIPTINE [Concomitant]
     Indication: PROLACTINOMA
     Dosage: 1.25 MG, 1X/DAY
     Route: 048
     Dates: start: 200711

REACTIONS (10)
  - Hallucination [Recovered/Resolved]
  - Nausea [Recovered/Resolved]
  - Confusional state [Recovered/Resolved]
  - Dizziness [Recovered/Resolved]
  - Feeling abnormal [Recovered/Resolved]
  - Palpitations [Recovered/Resolved]
  - Tremor [Recovered/Resolved]
  - Depressed mood [Recovered/Resolved]
  - Paraesthesia [Recovered/Resolved]
  - Drug withdrawal syndrome [Unknown]
